FAERS Safety Report 7679417-8 (Version None)
Quarter: 2011Q3

REPORT INFORMATION
  Report Type: 
  Country: None (occurrence: None)
  Receive Date: 20110812
  Receipt Date: 20110729
  Transmission Date: 20111222
  Serious: Yes (Hospitalization)
  Sender: FDA-Public Use
  Company Number: ES-MYLANLABS-2011S1015835

PATIENT
  Age: 39 Year
  Sex: Male

DRUGS (9)
  1. ABACAVIR [Concomitant]
     Indication: HIV INFECTION
     Dates: end: 20100524
  2. RALTEGRAVIR [Concomitant]
     Indication: HIV INFECTION
     Route: 065
  3. ROSUVASTATIN [Interacting]
     Indication: DYSLIPIDAEMIA
     Dosage: 10 MG/DAY
     Route: 065
     Dates: start: 20100503
  4. ROSUVASTATIN [Interacting]
     Dosage: INCREASED FROM 10 TO 20 MG/DAY ON 24 MAY.
     Route: 065
     Dates: start: 20100503
  5. TRUVADA [Concomitant]
     Indication: HIV INFECTION
     Route: 065
     Dates: start: 20100524
  6. LAMIVUDINE [Concomitant]
     Indication: HIV INFECTION
     Route: 065
     Dates: end: 20100524
  7. TACROLIMUS [Suspect]
     Indication: IMMUNOSUPPRESSION
     Route: 065
  8. MYCOPHENOLATE MOFETIL [Concomitant]
     Indication: IMMUNOSUPPRESSION
     Route: 065
  9. ROSUVASTATIN [Interacting]
     Dosage: INCREASED FROM 20 TO 40 MG/DAY ON 21 JUNE.
     Route: 065
     Dates: start: 20100503

REACTIONS (2)
  - DRUG INTERACTION [None]
  - RHABDOMYOLYSIS [None]
